FAERS Safety Report 4593074-9 (Version None)
Quarter: 2005Q1

REPORT INFORMATION
  Report Type: 
  Country: None (occurrence: None)
  Receive Date: 20050301
  Receipt Date: 20040715
  Transmission Date: 20050727
  Serious: Yes (Other)
  Sender: FDA-Public Use
  Company Number: US-ABBOTT-04P-163-0267168-00

PATIENT
  Age: 51 Year
  Sex: Female
  Weight: 60 kg

DRUGS (12)
  1. ZEMPLAR [Suspect]
     Indication: RENAL FAILURE
     Route: 042
     Dates: start: 20040702, end: 20040702
  2. ZEMPLAR [Suspect]
     Route: 042
     Dates: start: 20040714
  3. ZEMPLAR [Suspect]
     Route: 042
     Dates: start: 20040705, end: 20040705
  4. ZEMPLAR [Suspect]
     Route: 042
     Dates: start: 20040709, end: 20040709
  5. ZEMPLAR [Suspect]
     Route: 042
     Dates: start: 20040712, end: 20040712
  6. EPOETIN ALFA [Suspect]
     Indication: DRUG USE FOR UNKNOWN INDICATION
     Dosage: ^2K^
     Route: 058
     Dates: start: 20040702, end: 20040702
  7. EPOETIN ALFA [Suspect]
     Dosage: ^2K^
     Route: 058
     Dates: start: 20040714, end: 20040714
  8. EPOETIN ALFA [Suspect]
     Route: 058
     Dates: start: 20040705, end: 20040705
  9. EPOETIN ALFA [Suspect]
     Route: 058
     Dates: start: 20040709, end: 20040709
  10. EPOETIN ALFA [Suspect]
     Route: 058
     Dates: start: 20040712, end: 20040712
  11. GLIPIZIDE [Concomitant]
     Indication: DRUG USE FOR UNKNOWN INDICATION
     Route: 048
  12. CLONIDINE [Concomitant]
     Indication: DRUG USE FOR UNKNOWN INDICATION
     Route: 048

REACTIONS (5)
  - BLOOD PRESSURE INCREASED [None]
  - CHEST DISCOMFORT [None]
  - COUGH [None]
  - DYSPNOEA [None]
  - TACHYCARDIA [None]
